FAERS Safety Report 7787822-4 (Version None)
Quarter: 2011Q3

REPORT INFORMATION
  Report Type: 
  Country: None (occurrence: None)
  Receive Date: 20110930
  Receipt Date: 20110921
  Transmission Date: 20111222
  Serious: Yes (Hospitalization)
  Sender: FDA-Public Use
  Company Number: US-BIOGENIDEC-2011BI019276

PATIENT
  Age: 52 Year
  Sex: Male

DRUGS (1)
  1. AVONEX [Suspect]
     Indication: MULTIPLE SCLEROSIS
     Route: 030
     Dates: start: 19961101

REACTIONS (8)
  - DRUG INTOLERANCE [None]
  - ADVERSE DRUG REACTION [None]
  - BRAIN MASS [None]
  - UPPER LIMB FRACTURE [None]
  - FALL [None]
  - DEVICE BREAKAGE [None]
  - FEMUR FRACTURE [None]
  - PAIN IN EXTREMITY [None]
